FAERS Safety Report 8003996-4 (Version None)
Quarter: 2011Q4

REPORT INFORMATION
  Report Type: 
  Country: None (occurrence: None)
  Receive Date: 20111222
  Receipt Date: 20111213
  Transmission Date: 20120403
  Serious: Yes (Hospitalization)
  Sender: FDA-Public Use
  Company Number: JP-ROCHE-1014012

PATIENT
  Sex: Female
  Weight: 52 kg

DRUGS (21)
  1. OMALIZUMAB [Suspect]
     Dates: start: 20100908
  2. OMALIZUMAB [Suspect]
     Dates: start: 20101115
  3. TORSEMIDE [Concomitant]
     Dates: start: 20090722
  4. KINEDAK [Concomitant]
     Dates: start: 20090812
  5. AMARYL [Concomitant]
     Dates: start: 20090722
  6. OMALIZUMAB [Suspect]
     Indication: ASTHMA
     Route: 058
     Dates: start: 20100224
  7. OMALIZUMAB [Suspect]
     Dates: start: 20100324
  8. OMALIZUMAB [Suspect]
     Dates: start: 20110228
  9. CRESTOR [Concomitant]
     Dates: start: 20090722
  10. ADVAIR DISKUS 100/50 [Concomitant]
     Dates: start: 20090409
  11. FOSAMAX [Concomitant]
     Dates: start: 20090722
  12. OMALIZUMAB [Suspect]
     Dates: start: 20100421
  13. THEO-DUR [Concomitant]
     Dates: start: 20080820
  14. FLUTICASONE PROPIONATE [Concomitant]
     Dates: start: 20080606, end: 20081105
  15. ONON [Concomitant]
     Dates: start: 20080606, end: 20090721
  16. ALVESCO [Concomitant]
     Dates: start: 20081106, end: 20090408
  17. QVAR 40 [Concomitant]
  18. MEPTIN [Concomitant]
     Dates: start: 20080606
  19. MEPTIN [Concomitant]
     Dates: start: 20090422
  20. CANDESARTAN CILEXETIL [Concomitant]
     Dates: start: 20090722
  21. LANSOPRAZOLE [Concomitant]
     Dates: start: 20090722

REACTIONS (3)
  - CARDIAC FAILURE [None]
  - ASTHMA [None]
  - BLOOD PRESSURE INCREASED [None]
